FAERS Safety Report 24652992 (Version 1)
Quarter: 2024Q4

REPORT INFORMATION
  Report Type: Spontaneous
  Country: US (occurrence: US)
  Receive Date: 20241122
  Receipt Date: 20241122
  Transmission Date: 20250114
  Serious: Yes (Other)
  Sender: ORGANON
  Company Number: US-ORGANON-O2411USA000859

PATIENT
  Sex: Female

DRUGS (1)
  1. NEXPLANON [Suspect]
     Active Substance: ETONOGESTREL
     Indication: Contraception
     Dosage: 1 IMPLANT, IN LEFT ARM
     Route: 059
     Dates: start: 20240918, end: 2024

REACTIONS (5)
  - Device expulsion [Recovered/Resolved]
  - Implant site swelling [Recovering/Resolving]
  - Implant site pustules [Recovering/Resolving]
  - Implant site discharge [Recovering/Resolving]
  - Scab [Recovering/Resolving]

NARRATIVE: CASE EVENT DATE: 20241021
